FAERS Safety Report 17673050 (Version 1)
Quarter: 2020Q2

REPORT INFORMATION
  Report Type: Other
  Country: US (occurrence: US)
  Receive Date: 20200415
  Receipt Date: 20200415
  Transmission Date: 20200713
  Serious: No
  Sender: FDA-Public Use
  Company Number: US-ALKERMES INC.-ALK-2020-000658

PATIENT
  Sex: Female
  Weight: 70.82 kg

DRUGS (1)
  1. VIVITROL [Suspect]
     Active Substance: NALTREXONE
     Indication: DRUG DEPENDENCE
     Dosage: 380 MG, QMO
     Route: 030
     Dates: start: 20190930

REACTIONS (9)
  - Thyroid disorder [Unknown]
  - Selective eating disorder [Unknown]
  - Abdominal discomfort [Unknown]
  - Hypophagia [Unknown]
  - Weight decreased [Unknown]
  - Decreased appetite [Unknown]
  - Dysgeusia [Unknown]
  - Stress [Unknown]
  - Somnolence [Unknown]

NARRATIVE: CASE EVENT DATE: 20191023
